FAERS Safety Report 21834688 (Version 3)
Quarter: 2023Q4

REPORT INFORMATION
  Report Type: Report from Study
  Country: US (occurrence: US)
  Receive Date: 20230108
  Receipt Date: 20231013
  Transmission Date: 20240110
  Serious: Yes (Hospitalization, Other)
  Sender: FDA-Public Use
  Company Number: US-ABBVIE-4259598

PATIENT
  Age: 48 Year
  Sex: Female

DRUGS (4)
  1. HUMIRA [Suspect]
     Active Substance: ADALIMUMAB
     Indication: Rheumatoid arthritis
     Dosage: FORM STRENGTH: 40MG CITRATE FREE
     Route: 058
     Dates: start: 20180801, end: 202211
  2. HUMIRA [Suspect]
     Active Substance: ADALIMUMAB
     Dosage: FORM STRENGTH: 40MG CITRATE FREE
     Route: 058
     Dates: start: 202211, end: 202303
  3. PREDNISONE [Concomitant]
     Active Substance: PREDNISONE
     Indication: Product used for unknown indication
  4. METHOTREXATE [Concomitant]
     Active Substance: METHOTREXATE
     Indication: Product used for unknown indication

REACTIONS (15)
  - Clear cell renal cell carcinoma [Unknown]
  - Throat irritation [Unknown]
  - Increased upper airway secretion [Unknown]
  - Bone cancer [Unknown]
  - Fall [Unknown]
  - Renal cancer [Not Recovered/Not Resolved]
  - Medical device pain [Unknown]
  - Pain in extremity [Unknown]
  - Ovarian mass [Unknown]
  - Liver function test increased [Unknown]
  - Metastases to liver [Unknown]
  - Arthralgia [Unknown]
  - Neoplasm malignant [Unknown]
  - Malaise [Unknown]
  - Arthralgia [Unknown]

NARRATIVE: CASE EVENT DATE: 20211201
